FAERS Safety Report 20169398 (Version 1)
Quarter: 2021Q4

REPORT INFORMATION
  Report Type: Spontaneous
  Country: US (occurrence: None)
  Receive Date: 20211209
  Receipt Date: 20211209
  Transmission Date: 20220303
  Serious: No
  Sender: FDA-Public Use
  Company Number: None

PATIENT
  Sex: Female

DRUGS (1)
  1. ENBREL [Suspect]
     Active Substance: ETANERCEPT
     Indication: Rheumatoid arthritis
     Dosage: 2 TIMES A WEEK
     Route: 058
     Dates: start: 20210729

REACTIONS (3)
  - Loss of therapeutic response [None]
  - Symptom recurrence [None]
  - Fatigue [None]

NARRATIVE: CASE EVENT DATE: 20211101
